FAERS Safety Report 10912522 (Version 2)
Quarter: 2015Q1

REPORT INFORMATION
  Report Type: Spontaneous
  Country: AR (occurrence: AR)
  Receive Date: 20150313
  Receipt Date: 20150323
  Transmission Date: 20150721
  Serious: Yes (Death, Hospitalization, Other)
  Sender: FDA-Public Use
  Company Number: AR-SA-2014SA166873

PATIENT
  Age: 15 Month
  Sex: Female
  Weight: 8.5 kg

DRUGS (4)
  1. MYOZYME [Suspect]
     Active Substance: ALGLUCOSIDASE ALFA
     Indication: GLYCOGEN STORAGE DISEASE TYPE II
     Dosage: 2 VIALS OR 3 VIALS EACH TIME.
     Route: 041
     Dates: start: 20140526, end: 20141127
  2. ENALAPRIL [Concomitant]
     Active Substance: ENALAPRIL
     Indication: CARDIAC FAILURE
  3. SEVORANE [Concomitant]
     Active Substance: SEVOFLURANE
     Indication: INDUCTION OF ANAESTHESIA
     Dates: start: 20150306, end: 20150306
  4. CARVEDILOL. [Concomitant]
     Active Substance: CARVEDILOL
     Indication: CARDIAC FAILURE

REACTIONS (10)
  - Arrhythmia [Fatal]
  - Sepsis [Unknown]
  - Pneumonia [Unknown]
  - Respiratory failure [Unknown]
  - Aspiration bronchial [Unknown]
  - Cyanosis [Unknown]
  - Increased viscosity of nasal secretion [Recovering/Resolving]
  - Ventricular fibrillation [Fatal]
  - Pyrexia [Recovering/Resolving]
  - Atelectasis [Unknown]

NARRATIVE: CASE EVENT DATE: 2014
